FAERS Safety Report 5063830-1 (Version None)
Quarter: 2006Q3

REPORT INFORMATION
  Report Type: 
  Country: None (occurrence: None)
  Receive Date: 20060703
  Receipt Date: 20051101
  Transmission Date: 20061208
  Serious: No
  Sender: FDA-Public Use
  Company Number: 2005S1010851

PATIENT
  Age: 47 Year
  Sex: Female

DRUGS (5)
  1. CLOZAPINE [Suspect]
     Indication: BIPOLAR DISORDER
     Dosage: 300 MG;HS;PO
     Route: 048
     Dates: start: 20050608, end: 20051101
  2. VALPROATE SODIUM [Concomitant]
  3. CETIRIZINE HCL [Concomitant]
  4. OXYBUTYNIN [Concomitant]
  5. METHADONE HCL [Concomitant]

REACTIONS (1)
  - GRANULOCYTOPENIA [None]
